FAERS Safety Report 4744431-9 (Version None)
Quarter: 2005Q3

REPORT INFORMATION
  Report Type: 
  Country: None (occurrence: None)
  Receive Date: 20050809
  Receipt Date: 20050802
  Transmission Date: 20060218
  Serious: Yes (Hospitalization, Other)
  Sender: FDA-Public Use
  Company Number: 2005110290

PATIENT
  Age: 21 Year
  Sex: Male
  Weight: 65.7716 kg

DRUGS (1)
  1. DILANTIN [Suspect]
     Indication: CONVULSION
     Dosage: 300 MG (1 IN 1 D)
     Dates: start: 20050501

REACTIONS (5)
  - CEREBRAL THROMBOSIS [None]
  - CONDITION AGGRAVATED [None]
  - CONVULSION [None]
  - FALL [None]
  - HEADACHE [None]
